FAERS Safety Report 18946866 (Version 1)
Quarter: 2021Q1

REPORT INFORMATION
  Report Type: Spontaneous
  Country: US (occurrence: US)
  Receive Date: 20210226
  Receipt Date: 20210226
  Transmission Date: 20210420
  Serious: No
  Sender: FDA-Public Use
  Company Number: US-ROCHE-2541194

PATIENT
  Age: 13 Year
  Sex: Male
  Weight: 42.45 kg

DRUGS (6)
  1. FLONASE [Concomitant]
     Active Substance: FLUTICASONE PROPIONATE
     Dosage: 1?2 SPRAY
     Route: 045
     Dates: start: 20180119
  2. XOLAIR [Suspect]
     Active Substance: OMALIZUMAB
     Indication: ASTHMA
     Route: 058
     Dates: start: 20180402, end: 20200203
  3. ALBUTEROL. [Concomitant]
     Active Substance: ALBUTEROL
     Indication: ASTHMA
     Dates: start: 20181119
  4. SINGULAIR [Concomitant]
     Active Substance: MONTELUKAST SODIUM
     Route: 048
     Dates: start: 20161104
  5. ZYRTEC (UNITED STATES) [Concomitant]
     Route: 048
  6. ADVAIR HFA [Concomitant]
     Active Substance: FLUTICASONE PROPIONATE\SALMETEROL XINAFOATE
     Dosage: 500/50
     Dates: start: 20150320

REACTIONS (1)
  - Arthralgia [Recovering/Resolving]

NARRATIVE: CASE EVENT DATE: 20200101
